FAERS Safety Report 15683407 (Version 1)
Quarter: 2018Q4

REPORT INFORMATION
  Report Type: Other
  Country: PT (occurrence: PT)
  Receive Date: 20181204
  Receipt Date: 20181204
  Transmission Date: 20190205
  Serious: Yes (Hospitalization, Other)
  Sender: FDA-Public Use
  Company Number: PT-ASTELLAS-2018US051293

PATIENT
  Age: 75 Year
  Sex: Female

DRUGS (3)
  1. PEMETREXED. [Suspect]
     Active Substance: PEMETREXED
     Indication: LUNG ADENOCARCINOMA STAGE IV
     Dosage: UNK UNK, UNKNOWN FREQ.
     Route: 065
  2. ERLOTINIB [Suspect]
     Active Substance: ERLOTINIB
     Indication: LUNG ADENOCARCINOMA STAGE IV
     Dosage: UNK, UNKNOWN FREQ.
     Route: 065
  3. VINORELBINE [Suspect]
     Active Substance: VINORELBINE\VINORELBINE TARTRATE
     Indication: LUNG ADENOCARCINOMA STAGE IV
     Dosage: UNK, UNKNOWN FREQ.
     Route: 065

REACTIONS (3)
  - Haemoptysis [Unknown]
  - Malignant neoplasm progression [Unknown]
  - Therapy partial responder [Unknown]

NARRATIVE: CASE EVENT DATE: 2017
